FAERS Safety Report 9552315 (Version 1)
Quarter: 2013Q2

REPORT INFORMATION
  Report Type: Spontaneous
  Country: US (occurrence: None)
  Receive Date: 20130507
  Receipt Date: 20130507
  Transmission Date: 20140414
  Serious: Yes (Other)
  Sender: FDA-Public Use
  Company Number: PHEH2012US018003

PATIENT
  Sex: Male

DRUGS (1)
  1. TASIGNA (AMN107) CAPSULE, 200 MG [Suspect]
     Indication: CHRONIC MYELOID LEUKAEMIA
     Route: 048
     Dates: start: 2011, end: 20120906

REACTIONS (4)
  - Chronic myeloid leukaemia [None]
  - Blast crisis in myelogenous leukaemia [None]
  - Drug ineffective [None]
  - Malignant neoplasm progression [None]
